FAERS Safety Report 4956305-9 (Version None)
Quarter: 2006Q1

REPORT INFORMATION
  Report Type: 
  Country: None (occurrence: None)
  Receive Date: 20060329
  Receipt Date: 20060320
  Transmission Date: 20060701
  Serious: Yes (Other)
  Sender: FDA-Public Use
  Company Number: PHEH2006US03682

PATIENT
  Age: 75 Year
  Sex: Male

DRUGS (1)
  1. LOTREL [Suspect]
     Indication: HYPERTENSION
     Dosage: 10/20MG, QD
     Route: 048
     Dates: start: 20040101

REACTIONS (3)
  - DISEASE PROGRESSION [None]
  - NASAL CONGESTION [None]
  - WHITE BLOOD CELL COUNT INCREASED [None]
